FAERS Safety Report 7428786-2 (Version None)
Quarter: 2011Q2

REPORT INFORMATION
  Report Type: 
  Country: None (occurrence: None)
  Receive Date: 20110421
  Receipt Date: 20110415
  Transmission Date: 20111010
  Serious: Yes (Death, Hospitalization, Other)
  Sender: FDA-Public Use
  Company Number: US-BRISTOL-MYERS SQUIBB COMPANY-15678238

PATIENT
  Age: 24 Year
  Sex: Male

DRUGS (2)
  1. WARFARIN SODIUM [Suspect]
  2. COUMADIN [Suspect]

REACTIONS (4)
  - COAGULATION FACTOR V LEVEL ABNORMAL [None]
  - INTERNATIONAL NORMALISED RATIO INCREASED [None]
  - CARDIAC INFECTION [None]
  - INTERNATIONAL NORMALISED RATIO FLUCTUATION [None]
